FAERS Safety Report 11088789 (Version 1)
Quarter: 2015Q2

REPORT INFORMATION
  Report Type: Report from Study
  Country: AU (occurrence: AU)
  Receive Date: 20150504
  Receipt Date: 20150504
  Transmission Date: 20150821
  Serious: Yes (Hospitalization)
  Sender: FDA-Public Use
  Company Number: AU-MYLANLABS-2015M1014931

PATIENT

DRUGS (10)
  1. SIMVASTATIN. [Suspect]
     Active Substance: SIMVASTATIN
     Route: 048
  2. THIORIDAZINE [Suspect]
     Active Substance: THIORIDAZINE
     Route: 048
  3. RANITIDINE [Concomitant]
     Active Substance: RANITIDINE\RANITIDINE HYDROCHLORIDE
     Route: 048
  4. ENALAPRIL [Suspect]
     Active Substance: ENALAPRIL
     Route: 048
  5. METFORMIN [Suspect]
     Active Substance: METFORMIN HYDROCHLORIDE
     Route: 048
  6. NO DRUG NAME [Suspect]
     Active Substance: UNSPECIFIED INGREDIENT
     Route: 048
  7. CODEINE [Suspect]
     Active Substance: CODEINE
     Route: 048
  8. PARACETAMOL [Suspect]
     Active Substance: ACETAMINOPHEN
     Route: 048
  9. OXAZEPAM. [Suspect]
     Active Substance: OXAZEPAM
     Route: 048
  10. QUININE [Suspect]
     Active Substance: QUININE
     Route: 048

REACTIONS (5)
  - Toxicity to various agents [None]
  - Coma [Unknown]
  - Intentional overdose [Unknown]
  - Tachycardia [Unknown]
  - Hypotension [Unknown]
